FAERS Safety Report 13476740 (Version 1)
Quarter: 2017Q2

REPORT INFORMATION
  Report Type: Spontaneous
  Country: FR (occurrence: FR)
  Receive Date: 20170425
  Receipt Date: 20170425
  Transmission Date: 20170830
  Serious: Yes (Hospitalization)
  Sender: FDA-Public Use
  Company Number: FR-PFIZER INC-2017171759

PATIENT
  Age: 81 Year
  Sex: Male

DRUGS (12)
  1. RAMIPRIL. [Concomitant]
     Active Substance: RAMIPRIL
     Indication: HYPERTENSION
     Dosage: 10 MG, 1X/DAY
     Route: 048
  2. MIRTAZAPINE. [Concomitant]
     Active Substance: MIRTAZAPINE
     Indication: DEPRESSION
     Dosage: 45 MG, 1X/DAY
     Route: 048
  3. LOXEN /00639802/ [Concomitant]
     Active Substance: NICARDIPINE
     Indication: HYPERTENSION
     Dosage: 50 MG, 2X/DAY
     Route: 048
  4. LANSOPRAZOLE. [Suspect]
     Active Substance: LANSOPRAZOLE
     Dosage: 30 MG, 1X/DAY
     Route: 048
     Dates: end: 20170213
  5. MACROGOL 4000 [Concomitant]
     Active Substance: POLYETHYLENE GLYCOL 4000
     Dosage: 10 G, AS NEEDED
     Route: 048
  6. TAHOR [Suspect]
     Active Substance: ATORVASTATIN CALCIUM
     Dosage: 40 MG, 1X/DAY
     Route: 048
     Dates: end: 20170213
  7. VENTOLINE /00139501/ [Concomitant]
     Active Substance: ALBUTEROL
     Dosage: 100 UG, UNK
     Route: 055
  8. EUPRESSYL /00631801/ [Concomitant]
     Active Substance: URAPIDIL
     Indication: HYPERTENSION
     Dosage: 3 DF, DAILY
     Route: 048
  9. VENLAFAXINE HCL [Suspect]
     Active Substance: VENLAFAXINE HYDROCHLORIDE
     Indication: DEPRESSION
     Dosage: 150 MG, 1X/DAY
     Route: 048
     Dates: end: 20170213
  10. KAYEXALATE [Concomitant]
     Active Substance: SODIUM POLYSTYRENE SULFONATE
     Dosage: 1 DF, 2X/DAY
     Route: 048
  11. BECOTIDE [Concomitant]
     Active Substance: BECLOMETHASONE DIPROPIONATE
     Dosage: 1 DF, 2X/DAY
     Route: 055
  12. DOMPERIDONE [Suspect]
     Active Substance: DOMPERIDONE
     Dosage: 10 MG, AS NEEDED
     Route: 048
     Dates: end: 20170213

REACTIONS (1)
  - Allergic hepatitis [Recovering/Resolving]

NARRATIVE: CASE EVENT DATE: 20170213
